FAERS Safety Report 14421149 (Version 1)
Quarter: 2018Q1

REPORT INFORMATION
  Report Type: Not Available
  Country: US (occurrence: US)
  Receive Date: 20180122
  Receipt Date: 20180122
  Transmission Date: 20180509
  Serious: No
  Sender: FDA-Public Use
  Company Number: US-NEUROCRINE BIOSCIENCES INC.-2018NBI00041

PATIENT
  Sex: Female

DRUGS (4)
  1. FLUVOXAMINE [Concomitant]
     Active Substance: FLUVOXAMINE
  2. INGREZZA [Suspect]
     Active Substance: VALBENAZINE
     Indication: DYSKINESIA
     Route: 048
  3. INGREZZA [Suspect]
     Active Substance: VALBENAZINE
     Route: 048
  4. CLOZAPINE. [Concomitant]
     Active Substance: CLOZAPINE

REACTIONS (5)
  - Drug intolerance [Unknown]
  - Somnolence [Unknown]
  - Fatigue [Unknown]
  - Depressed level of consciousness [Unknown]
  - Drooling [Unknown]
